FAERS Safety Report 24417652 (Version 2)
Quarter: 2024Q4

REPORT INFORMATION
  Report Type: Spontaneous
  Country: JP (occurrence: JP)
  Receive Date: 20241009
  Receipt Date: 20241015
  Transmission Date: 20250115
  Serious: No
  Sender: MERCK
  Company Number: JP-BAYER-2024A140797

PATIENT
  Age: 86 Year
  Sex: Female

DRUGS (4)
  1. VERICIGUAT [Suspect]
     Active Substance: VERICIGUAT
     Indication: Cardiac failure chronic
     Dosage: 2.5MG
     Route: 048
     Dates: start: 202401
  2. VERICIGUAT [Suspect]
     Active Substance: VERICIGUAT
     Dosage: 5MG
     Route: 048
     Dates: start: 202402
  3. AZULFIDINE [Suspect]
     Active Substance: SULFASALAZINE
     Indication: Rheumatic disorder
     Dosage: UNK
     Dates: start: 202004, end: 20240904
  4. ENALAPRIL MALEATE [Concomitant]
     Active Substance: ENALAPRIL MALEATE
     Dosage: UNK

REACTIONS (1)
  - Neutrophil count decreased [Not Recovered/Not Resolved]

NARRATIVE: CASE EVENT DATE: 20240903
